FAERS Safety Report 5619236-7 (Version None)
Quarter: 2008Q1

REPORT INFORMATION
  Report Type: 
  Country: None (occurrence: None)
  Receive Date: 20080205
  Receipt Date: 20080129
  Transmission Date: 20080703
  Serious: Yes (Hospitalization)
  Sender: FDA-Public Use
  Company Number: 2007SP009206

PATIENT
  Age: 54 Year
  Sex: Female

DRUGS (3)
  1. TEMODAL [Suspect]
     Indication: GLIOSARCOMA
     Dosage: 75 MG/M2; PO
     Route: 048
     Dates: start: 20070314, end: 20070328
  2. VALPROATE SODIUM [Concomitant]
  3. LEVETIRACETAM [Concomitant]

REACTIONS (3)
  - ALVEOLITIS ALLERGIC [None]
  - INTERSTITIAL LUNG DISEASE [None]
  - PYREXIA [None]
